FAERS Safety Report 19970457 (Version 1)
Quarter: 2021Q4

REPORT INFORMATION
  Report Type: Spontaneous
  Country: EG (occurrence: EG)
  Receive Date: 20211019
  Receipt Date: 20211019
  Transmission Date: 20220303
  Serious: Yes (Other)
  Sender: FDA-Public Use
  Company Number: EG-ELI_LILLY_AND_COMPANY-EG202110004187

PATIENT
  Age: 65 Year
  Sex: Female

DRUGS (3)
  1. GEMZAR [Suspect]
     Active Substance: GEMCITABINE HYDROCHLORIDE
     Indication: Ovarian cancer
     Dosage: 500 MG, OTHER (EVERY 21 DAYS ADMINISTERING ON DAY 1 AND DAY 8)
     Route: 042
  2. GEMZAR [Suspect]
     Active Substance: GEMCITABINE HYDROCHLORIDE
     Dosage: 500 MG, OTHER (EVERY 21 DAYS ADMINISTERING ON DAY 1 AND DAY 8)
     Route: 042
     Dates: start: 20210817
  3. CARBOPLATIN [Suspect]
     Active Substance: CARBOPLATIN
     Indication: Ovarian cancer
     Dosage: 500 MG, UNKNOWN
     Route: 042
     Dates: start: 20210817

REACTIONS (5)
  - Erythema [Recovering/Resolving]
  - Asphyxia [Recovering/Resolving]
  - Dyspnoea [Recovering/Resolving]
  - Hypochromic anaemia [Unknown]
  - Blood glucose increased [Unknown]

NARRATIVE: CASE EVENT DATE: 20210817
